FAERS Safety Report 25892520 (Version 3)
Quarter: 2025Q4

REPORT INFORMATION
  Report Type: Report from Study
  Country: CN (occurrence: None)
  Receive Date: 20251007
  Receipt Date: 20251229
  Transmission Date: 20260119
  Serious: Yes (Hospitalization, Other)
  Sender: UCB
  Company Number: CN-UCBSA-2025062010

PATIENT
  Age: 33 Year

DRUGS (1)
  1. BIMEKIZUMAB [Suspect]
     Active Substance: BIMEKIZUMAB
     Indication: Ankylosing spondylitis
     Dosage: 160 MILLIGRAM, MONTHLY (QM)

REACTIONS (2)
  - Lung neoplasm malignant [Unknown]
  - Pneumonia [Unknown]
